FAERS Safety Report 20933034 (Version 2)
Quarter: 2022Q3

REPORT INFORMATION
  Report Type: Spontaneous
  Country: TH (occurrence: TH)
  Receive Date: 20220608
  Receipt Date: 20220705
  Transmission Date: 20221027
  Serious: Yes (Death, Other)
  Sender: FDA-Public Use
  Company Number: TH-OTSUKA-2022_030241

PATIENT
  Age: 19 Year
  Sex: Male

DRUGS (1)
  1. ICLUSIG [Suspect]
     Active Substance: PONATINIB
     Indication: Philadelphia positive acute lymphocytic leukaemia
     Dosage: 30 MILLIGRAM, QD
     Route: 048
     Dates: start: 20211214

REACTIONS (1)
  - Acute lymphocytic leukaemia recurrent [Fatal]
